FAERS Safety Report 20353963 (Version 2)
Quarter: 2022Q2

REPORT INFORMATION
  Report Type: Spontaneous
  Country: GB (occurrence: GB)
  Receive Date: 20220120
  Receipt Date: 20220412
  Transmission Date: 20220721
  Serious: Yes (Congenital Anomaly)
  Sender: FDA-Public Use
  Company Number: None

PATIENT
  Age: 24 Year
  Sex: Female

DRUGS (3)
  1. FLUOXETINE [Suspect]
     Active Substance: FLUOXETINE HYDROCHLORIDE
     Indication: Anxiety disorder
     Route: 048
  2. ARIPIPRAZOLE [Suspect]
     Active Substance: ARIPIPRAZOLE
     Indication: Bipolar I disorder
     Dosage: 25
     Route: 048
  3. PREGABALIN [Suspect]
     Active Substance: PREGABALIN
     Indication: Anxiety disorder
     Route: 048

REACTIONS (13)
  - Complication of pregnancy [Unknown]
  - Premature rupture of membranes [Unknown]
  - Haemorrhage in pregnancy [Unknown]
  - Amniotic cavity infection [Unknown]
  - Haemosiderosis [Unknown]
  - Foetal vascular malperfusion [Unknown]
  - Abdominal pain [Unknown]
  - Back pain [Unknown]
  - Bacterial vaginosis [Unknown]
  - Oligohydramnios [Unknown]
  - Abortion spontaneous [Unknown]
  - Vaginal haemorrhage [Unknown]
  - Maternal exposure during pregnancy [Unknown]

NARRATIVE: CASE EVENT DATE: 20210511
